FAERS Safety Report 7267657 (Version 3)
Quarter: 2012Q4

REPORT INFORMATION
  Report Type: Report from Study
  Country: CZ (occurrence: CZ)
  Receive Date: 20100201
  Receipt Date: 20121108
  Transmission Date: 20130627
  Serious: Yes (Death, Other)
  Sender: FDA-Public Use
  Company Number: PHHO2010CZ01456

PATIENT
  Age: 71 Year
  Sex: Female
  Weight: 56 kg

DRUGS (2)
  1. AFINITOR [Suspect]
     Indication: METASTATIC RENAL CELL CARCINOMA
     Dosage: 10 mg/ daily
     Route: 048
     Dates: start: 20090415
  2. AVASTIN [Suspect]
     Indication: METASTATIC RENAL CELL CARCINOMA
     Dosage: 580 mg/ daily
     Route: 048
     Dates: start: 20090415, end: 20100120

REACTIONS (6)
  - Sudden death [Fatal]
  - Fall [Fatal]
  - Respiratory arrest [Fatal]
  - Dizziness [Fatal]
  - Syncope [Fatal]
  - Pulmonary embolism [Unknown]
